FAERS Safety Report 9242672 (Version 1)
Quarter: 2013Q2

REPORT INFORMATION
  Report Type: Spontaneous
  Country: CH (occurrence: CH)
  Receive Date: 20130419
  Receipt Date: 20130419
  Transmission Date: 20140414
  Serious: Yes (Hospitalization)
  Sender: FDA-Public Use
  Company Number: CH-GLAXOSMITHKLINE-B0885124A

PATIENT
  Age: 80 Year
  Sex: Female

DRUGS (11)
  1. ZINACEF [Suspect]
     Indication: PRODUCT USED FOR UNKNOWN INDICATION
     Route: 065
     Dates: start: 20130324, end: 20130325
  2. ESOMEPRAZOLE [Suspect]
     Indication: PRODUCT USED FOR UNKNOWN INDICATION
     Route: 065
     Dates: start: 20130324
  3. NOVALGIN [Suspect]
     Indication: PAIN
     Dosage: 1000MG FOUR TIMES PER DAY
     Route: 048
     Dates: start: 20130324, end: 20130326
  4. FRAGMIN [Concomitant]
     Route: 058
  5. ALLOPURINOL [Concomitant]
     Route: 065
  6. VIGANTOLETTEN [Concomitant]
     Route: 065
  7. METFORMIN [Concomitant]
     Route: 065
  8. SIMVASTATIN [Concomitant]
     Route: 065
  9. LISINOPRIL [Concomitant]
     Route: 065
  10. THYROXINE [Concomitant]
     Route: 065
  11. CALCIUM [Concomitant]
     Route: 065

REACTIONS (1)
  - Agranulocytosis [Recovered/Resolved]
